FAERS Safety Report 16722321 (Version 4)
Quarter: 2020Q3

REPORT INFORMATION
  Report Type: Report from Study
  Country: US (occurrence: US)
  Receive Date: 20190820
  Receipt Date: 20200819
  Transmission Date: 20201102
  Serious: Yes (Hospitalization, Other)
  Sender: FDA-Public Use
  Company Number: US-ACTELION-A-NJ2019-194559

PATIENT
  Age: 72 Year
  Sex: Female
  Weight: 122.45 kg

DRUGS (2)
  1. AMLODIPINE [Concomitant]
     Active Substance: AMLODIPINE BESYLATE
  2. UPTRAVI [Suspect]
     Active Substance: SELEXIPAG
     Indication: PULMONARY ARTERIAL HYPERTENSION
     Dosage: 400 MCG, BID
     Route: 048

REACTIONS (7)
  - Respiratory failure [Unknown]
  - Fall [Unknown]
  - Tracheostomy [Unknown]
  - Pain [Unknown]
  - Pneumonia [Unknown]
  - Loss of consciousness [Unknown]
  - Injury [Unknown]

NARRATIVE: CASE EVENT DATE: 201907
